FAERS Safety Report 11867904 (Version 1)
Quarter: 2015Q4

REPORT INFORMATION
  Report Type: Spontaneous
  Country: US (occurrence: US)
  Receive Date: 20151224
  Receipt Date: 20151224
  Transmission Date: 20160305
  Serious: Yes (Other)
  Sender: FDA-Public Use
  Company Number: US-JNJFOC-20151214668

PATIENT

DRUGS (4)
  1. COLESEVELAM [Concomitant]
     Active Substance: COLESEVELAM
     Route: 065
  2. METFORMIN [Concomitant]
     Active Substance: METFORMIN HYDROCHLORIDE
     Indication: DIABETES MELLITUS
     Route: 065
  3. INSULIN [Concomitant]
     Active Substance: INSULIN NOS
     Indication: DIABETES MELLITUS
     Route: 065
  4. CANAGLIFLOZIN [Suspect]
     Active Substance: CANAGLIFLOZIN
     Indication: TYPE 2 DIABETES MELLITUS
     Dosage: ONE THIRD OF THE PATIENTS RECEIVED 300 MG AND TWO THIRD OF THE PATIENTS RECEIVED 100 MG.
     Route: 065

REACTIONS (9)
  - Urinary tract infection [Unknown]
  - Urine ketone body present [Unknown]
  - Diarrhoea [Unknown]
  - High density lipoprotein increased [Unknown]
  - Dry mouth [Unknown]
  - Blood pressure diastolic decreased [Unknown]
  - Blood pressure systolic decreased [Unknown]
  - Blood urea increased [Unknown]
  - Fungal infection [Unknown]
